FAERS Safety Report 4280118-7 (Version None)
Quarter: 2004Q1

REPORT INFORMATION
  Report Type: 
  Country: None (occurrence: None)
  Receive Date: 20040126
  Receipt Date: 20040115
  Transmission Date: 20041129
  Serious: Yes (Other)
  Sender: FDA-Public Use
  Company Number: NL-JNJFOC-20040103948

PATIENT
  Sex: Female

DRUGS (1)
  1. RISPERDAL [Suspect]
     Indication: DELIRIUM
     Dosage: 25 MG, IN 2 TOTAL

REACTIONS (3)
  - COMA [None]
  - MEDICATION ERROR [None]
  - SOMNOLENCE [None]
